FAERS Safety Report 7617556-8 (Version None)
Quarter: 2011Q3

REPORT INFORMATION
  Report Type: 
  Country: None (occurrence: None)
  Receive Date: 20110718
  Receipt Date: 20110706
  Transmission Date: 20111222
  Serious: Yes (Hospitalization)
  Sender: FDA-Public Use
  Company Number: DE-JNJFOC-20110703400

PATIENT
  Age: 56 Year
  Sex: Male

DRUGS (5)
  1. MARCUMAR [Concomitant]
     Indication: PROTEIN S DEFICIENCY
  2. MARCUMAR [Concomitant]
     Indication: PROTEIN C DEFICIENCY
  3. MARCUMAR [Concomitant]
     Indication: PULMONARY EMBOLISM
  4. REMICADE [Suspect]
     Indication: CROHN'S DISEASE
     Route: 042
     Dates: start: 20100801
  5. BELOC ZOK COMP [Concomitant]
     Dosage: METOPROLOL 95MG/ HYDROCHLOROTHIAZID 12.5 MG

REACTIONS (1)
  - HORNER'S SYNDROME [None]
